FAERS Safety Report 11272601 (Version 1)
Quarter: 2015Q3

REPORT INFORMATION
  Report Type: Spontaneous
  Country: US (occurrence: None)
  Receive Date: 20150713
  Receipt Date: 20150713
  Transmission Date: 20151125
  Serious: Yes (Life-Threatening, Hospitalization, Disabling)
  Sender: FDA-Public Use
  Company Number: None

PATIENT
  Age: 8 Year
  Sex: Male
  Weight: 31.5 kg

DRUGS (2)
  1. TACROLIMUS. [Suspect]
     Active Substance: TACROLIMUS
     Indication: TRANSPLANT REJECTION
     Route: 048
  2. TACROLIMUS. [Suspect]
     Active Substance: TACROLIMUS
     Indication: PROPHYLAXIS
     Route: 048

REACTIONS (13)
  - Thrombotic microangiopathy [None]
  - Thrombotic stroke [None]
  - Scrotal disorder [None]
  - Cavernous sinus thrombosis [None]
  - Vasculitis [None]
  - Optic ischaemic neuropathy [None]
  - Oesophageal disorder [None]
  - Oedema [None]
  - Thrombosis [None]
  - Arm amputation [None]
  - Penile vein thrombosis [None]
  - Antiphospholipid syndrome [None]
  - Cardiac function disturbance postoperative [None]

NARRATIVE: CASE EVENT DATE: 20140729
